FAERS Safety Report 16242431 (Version 1)
Quarter: 2019Q2

REPORT INFORMATION
  Report Type: Spontaneous
  Country: TR (occurrence: TR)
  Receive Date: 20190426
  Receipt Date: 20190426
  Transmission Date: 20190711
  Serious: Yes (Hospitalization, Other)
  Sender: FDA-Public Use
  Company Number: TR-BION-007949

PATIENT
  Age: 21 Year
  Sex: Female

DRUGS (1)
  1. CETIRIZINE/CETIRIZINE HYDROCHLORIDE [Suspect]
     Active Substance: CETIRIZINE HYDROCHLORIDE
     Indication: PRURITUS

REACTIONS (3)
  - Hepatomegaly [Unknown]
  - Hepatic steatosis [Unknown]
  - Hepatitis toxic [Recovered/Resolved]
